FAERS Safety Report 9205812 (Version 1)
Quarter: 2013Q2

REPORT INFORMATION
  Report Type: Spontaneous
  Country: TR (occurrence: None)
  Receive Date: 20130401
  Receipt Date: 20130401
  Transmission Date: 20140414
  Serious: Yes (Other)
  Sender: FDA-Public Use
  Company Number: TR-ALKEM-000030

PATIENT
  Age: 59 Year
  Sex: Female

DRUGS (2)
  1. QUETIAPINE (QUETIAPINE) (QUETIAPINE) [Suspect]
     Indication: PSYCHOTIC DISORDER
  2. MEMANTINE (MEMANTINE) [Concomitant]

REACTIONS (2)
  - Floppy iris syndrome [None]
  - Miosis [None]
